FAERS Safety Report 7816707 (Version 3)
Quarter: 2013Q2

REPORT INFORMATION
  Report Type: Spontaneous
  Country: BR (occurrence: BR)
  Receive Date: 20110217
  Receipt Date: 20130404
  Transmission Date: 20140414
  Serious: Yes (Hospitalization)
  Sender: FDA-Public Use
  Company Number: BR-US-EMD SERONO, INC.-7042206

PATIENT
  Sex: Female

DRUGS (1)
  1. REBIF [Suspect]
     Indication: RELAPSING-REMITTING MULTIPLE SCLEROSIS
     Dates: start: 20060320, end: 20121126

REACTIONS (10)
  - Cholelithiasis [Recovering/Resolving]
  - Irritability [Unknown]
  - Crying [Unknown]
  - Motor dysfunction [Unknown]
  - Cognitive disorder [Unknown]
  - Speech disorder [Recovered/Resolved]
  - Injection site nodule [Unknown]
  - Injection site pain [Recovered/Resolved]
  - Injection site erythema [Recovered/Resolved]
  - Fatigue [Unknown]
